FAERS Safety Report 5496856-4 (Version None)
Quarter: 2007Q4

REPORT INFORMATION
  Report Type: 
  Country: None (occurrence: None)
  Receive Date: 20071025
  Receipt Date: 20070828
  Transmission Date: 20080405
  Serious: No
  Sender: FDA-Public Use
  Company Number: A0676989A

PATIENT
  Age: 40 Year
  Sex: Male

DRUGS (2)
  1. ADVAIR DISKUS 100/50 [Suspect]
     Indication: ASTHMA
     Dosage: 1PUFF PER DAY
     Route: 055
     Dates: start: 20070810, end: 20070801
  2. LIPITOR [Concomitant]

REACTIONS (6)
  - BURNING SENSATION [None]
  - ERUCTATION [None]
  - MUSCLE SPASMS [None]
  - PHARYNGOLARYNGEAL DISCOMFORT [None]
  - SNORING [None]
  - THROAT IRRITATION [None]
